FAERS Safety Report 8549841-X (Version None)
Quarter: 2012Q3

REPORT INFORMATION
  Report Type: 
  Country: None (occurrence: None)
  Receive Date: 20120718
  Receipt Date: 20120703
  Transmission Date: 20120928
  Serious: Yes (Hospitalization)
  Sender: FDA-Public Use
  Company Number: US-2012-10131

PATIENT
  Age: 50 Year
  Sex: Male

DRUGS (18)
  1. BENADRYL [Concomitant]
  2. ZOTRAN (ALPRAZOLAM) [Concomitant]
  3. AMBIEN [Concomitant]
  4. CETIRIZINE (CETIRIZINE HYDROCHLORIDE) [Concomitant]
  5. DOCUSATE (DOCUSATE) [Concomitant]
  6. ETOPOSIDE [Concomitant]
  7. ACETAMINOPHEN [Concomitant]
  8. CYCLOPHOSPHAMIDE [Concomitant]
  9. ACTCLLOVIR (ACICLOVIR) [Concomitant]
  10. BUSULFAN [Suspect]
     Indication: LYMPHOMA
     Dosage: 61.3 MG MG MILLIGRAM(S), DAILY DOSE, INTRAVENOUS, 298 MG MILLIGRAM(S), DAILY DOSE, INTRAVENOUS,
     Route: 042
     Dates: start: 20120104, end: 20120104
  11. BUSULFAN [Suspect]
     Indication: LYMPHOMA
     Dosage: 61.3 MG MG MILLIGRAM(S), DAILY DOSE, INTRAVENOUS, 298 MG MILLIGRAM(S), DAILY DOSE, INTRAVENOUS,
     Route: 042
     Dates: start: 20120110, end: 20120113
  12. FAMOTIDINE [Concomitant]
  13. SOLU-MEDROL [Concomitant]
  14. ARTIFICIAL TEARS (POLYVINYL ALCOHOL) [Concomitant]
  15. ATIVAN [Concomitant]
  16. OXYCODONE HCL [Concomitant]
  17. AMLODIPINE [Concomitant]
  18. FAMOTIDINE [Concomitant]

REACTIONS (7)
  - GALLBLADDER OEDEMA [None]
  - HYPERAEMIA [None]
  - SPLENOMEGALY [None]
  - CHOLECYSTITIS ACUTE [None]
  - CHOLELITHIASIS [None]
  - HEPATIC STEATOSIS [None]
  - GALLBLADDER DISORDER [None]
